FAERS Safety Report 6264783-0 (Version None)
Quarter: 2009Q3

REPORT INFORMATION
  Report Type: 
  Country: None (occurrence: None)
  Receive Date: 20090710
  Receipt Date: 20090702
  Transmission Date: 20100115
  Serious: Yes (Hospitalization)
  Sender: FDA-Public Use
  Company Number: US-GENENTECH-232529

PATIENT
  Sex: Male

DRUGS (3)
  1. BEVACIZUMAB [Suspect]
     Indication: PROSTATE CANCER METASTATIC
     Dosage: 15 MG/KG, Q3W
     Route: 042
     Dates: start: 20060803, end: 20061026
  2. DOCETAXEL [Suspect]
     Indication: PROSTATE CANCER METASTATIC
     Dosage: 75 MG/M2, UNK
     Route: 042
     Dates: start: 20060803, end: 20061026
  3. PREDNISONE TAB [Suspect]
     Indication: PROSTATE CANCER METASTATIC
     Dosage: 5 MG, BID
     Route: 048
     Dates: start: 20060803, end: 20061026

REACTIONS (4)
  - ATRIAL FIBRILLATION [None]
  - DYSPNOEA [None]
  - NEUTROPENIA [None]
  - RECTAL HAEMORRHAGE [None]
